FAERS Safety Report 18916972 (Version 2)
Quarter: 2021Q1

REPORT INFORMATION
  Report Type: Spontaneous
  Country: GB (occurrence: GB)
  Receive Date: 20210219
  Receipt Date: 20210329
  Transmission Date: 20210420
  Serious: Yes (Life-Threatening, Hospitalization, Other)
  Sender: FDA-Public Use
  Company Number: GB-009507513-2102GBR005833

PATIENT
  Age: 70 Year
  Sex: Female
  Weight: 64 kg

DRUGS (4)
  1. SIMVASTATIN. [Concomitant]
     Active Substance: SIMVASTATIN
     Indication: BLOOD CHOLESTEROL INCREASED
     Dates: start: 20130916
  2. ZOLPIDEM TARTRATE. [Concomitant]
     Active Substance: ZOLPIDEM TARTRATE
     Indication: POOR QUALITY SLEEP
     Dates: start: 20130916
  3. BCG LIVE [Suspect]
     Active Substance: BACILLUS CALMETTE-GUERIN SUBSTRAIN TICE LIVE ANTIGEN
     Indication: BLADDER CANCER
  4. TOZINAMERAN. [Suspect]
     Active Substance: TOZINAMERAN
     Dosage: DOSE 1
     Dates: start: 20210203

REACTIONS (7)
  - Headache [Recovered/Resolved with Sequelae]
  - Back pain [Unknown]
  - Diarrhoea [Unknown]
  - Hypertension [Recovering/Resolving]
  - Headache [Unknown]
  - Rectal haemorrhage [Recovered/Resolved with Sequelae]
  - Abdominal pain upper [Recovered/Resolved with Sequelae]

NARRATIVE: CASE EVENT DATE: 20210204
